FAERS Safety Report 5468711-7 (Version None)
Quarter: 2007Q3

REPORT INFORMATION
  Report Type: 
  Country: None (occurrence: None)
  Receive Date: 20070926
  Receipt Date: 20070916
  Transmission Date: 20080115
  Serious: Yes (Other)
  Sender: FDA-Public Use
  Company Number: AU-PFIZER INC-2007077552

PATIENT
  Age: 69 Year
  Sex: Male

DRUGS (9)
  1. ALDACTONE [Suspect]
  2. LIPITOR [Suspect]
     Dosage: DAILY DOSE:20MG
  3. ATACAND [Concomitant]
  4. LASIX [Concomitant]
  5. DILATREND [Concomitant]
  6. ENDEP [Concomitant]
  7. WARFARIN SODIUM [Concomitant]
  8. ZYLOPRIM [Concomitant]
  9. DIAFORMIN [Concomitant]

REACTIONS (4)
  - ANAEMIA [None]
  - DYSPNOEA [None]
  - OEDEMA PERIPHERAL [None]
  - WEIGHT DECREASED [None]
